FAERS Safety Report 24593453 (Version 1)
Quarter: 2024Q4

REPORT INFORMATION
  Report Type: Spontaneous
  Country: US (occurrence: US)
  Receive Date: 20241108
  Receipt Date: 20241108
  Transmission Date: 20250115
  Serious: No
  Sender: TEVA
  Company Number: US-TEVA-VS-3256770

PATIENT
  Age: 38 Year
  Sex: Female

DRUGS (1)
  1. TERIPARATIDE [Suspect]
     Active Substance: TERIPARATIDE
     Indication: Osteoporosis
     Dosage: 600-2.4 MCG/ML
     Route: 065
     Dates: start: 202409

REACTIONS (4)
  - Malaise [Recovering/Resolving]
  - Arthralgia [Recovering/Resolving]
  - Arthralgia [Recovering/Resolving]
  - Muscle discomfort [Recovering/Resolving]

NARRATIVE: CASE EVENT DATE: 20241001
